FAERS Safety Report 19953052 (Version 1)
Quarter: 2021Q4

REPORT INFORMATION
  Report Type: Spontaneous
  Country: US (occurrence: US)
  Receive Date: 20211014
  Receipt Date: 20211014
  Transmission Date: 20220303
  Serious: Yes (Death, Hospitalization, Other)
  Sender: FDA-Public Use
  Company Number: US-SNT-000193

PATIENT
  Age: 52 Year
  Sex: Male
  Weight: 53 kg

DRUGS (15)
  1. POSACONAZOLE [Suspect]
     Active Substance: POSACONAZOLE
     Indication: Antifungal prophylaxis
     Route: 042
  2. VALACYCLOVIR HYDROCHLORIDE [Suspect]
     Active Substance: VALACYCLOVIR HYDROCHLORIDE
     Indication: Prophylaxis
     Route: 048
  3. ENTECAVIR [Suspect]
     Active Substance: ENTECAVIR
     Indication: Prophylaxis
     Route: 048
  4. PANTOPRAZOLE [Suspect]
     Active Substance: PANTOPRAZOLE
     Indication: Product used for unknown indication
     Route: 048
  5. CASPOFUNGIN [Suspect]
     Active Substance: CASPOFUNGIN
     Indication: Product used for unknown indication
     Route: 042
  6. TACROLIMUS [Suspect]
     Active Substance: TACROLIMUS
     Indication: Prophylaxis
     Dosage: TACROLIMUS 1 MG ORALLY EVERY MORNING
     Route: 048
  7. METHYLPREDNISOLONE [Suspect]
     Active Substance: METHYLPREDNISOLONE
     Indication: Graft versus host disease
     Route: 042
  8. LETERMOVIR [Suspect]
     Active Substance: LETERMOVIR
     Indication: Prophylaxis
     Route: 048
  9. CYCLOPHOSPHAMIDE [Suspect]
     Active Substance: CYCLOPHOSPHAMIDE
     Indication: Graft versus host disease
     Dosage: ON DAY 3 AND 4
     Route: 065
  10. POSACONAZOLE [Suspect]
     Active Substance: POSACONAZOLE
     Indication: Antifungal prophylaxis
     Dosage: THREE 100-MG TABLETS
     Route: 048
  11. POSACONAZOLE [Suspect]
     Active Substance: POSACONAZOLE
     Indication: Antifungal prophylaxis
     Route: 048
  12. TACROLIMUS [Suspect]
     Active Substance: TACROLIMUS
     Indication: Prophylaxis
     Dosage: TACROLIMUS 0.5 MG ORALLY EVERY EVENING
     Route: 048
  13. TACROLIMUS [Suspect]
     Active Substance: TACROLIMUS
     Indication: Prophylaxis
     Route: 048
  14. TACROLIMUS [Suspect]
     Active Substance: TACROLIMUS
     Indication: Prophylaxis
     Dosage: 1 MG ORALLY EVERY MORNING (DAY 26-DISCHARGE)
     Route: 048
  15. TACROLIMUS [Suspect]
     Active Substance: TACROLIMUS
     Indication: Prophylaxis
     Dosage: 0.5 MG ORALLY EVERY EVENING (DAY 26-DISCHARGE)
     Route: 048

REACTIONS (20)
  - Multiple organ dysfunction syndrome [Fatal]
  - Malnutrition [Fatal]
  - Thrombocytopenia [Unknown]
  - Anaemia [Unknown]
  - Burkholderia cepacia complex sepsis [Unknown]
  - Facial wasting [Unknown]
  - Muscle atrophy [Unknown]
  - Diarrhoea [Unknown]
  - Clostridium difficile infection [Unknown]
  - Parenteral nutrition [Unknown]
  - Enteral nutrition [Unknown]
  - Hypophagia [Unknown]
  - Hyperhomocysteinaemia [Unknown]
  - Vitamin A deficiency [Unknown]
  - Therapeutic response decreased [Unknown]
  - Asthenia [Unknown]
  - Fatigue [Unknown]
  - Dizziness [Unknown]
  - Hypothermia [Unknown]
  - Chills [Unknown]
